FAERS Safety Report 9834780 (Version 1)
Quarter: 2014Q1

REPORT INFORMATION
  Report Type: Spontaneous
  Country: US (occurrence: US)
  Receive Date: 20140122
  Receipt Date: 20140122
  Transmission Date: 20141002
  Serious: Yes (Hospitalization)
  Sender: FDA-Public Use
  Company Number: US-BAYER-2014-009614

PATIENT
  Age: 35 Year
  Sex: Female
  Weight: 55 kg

DRUGS (17)
  1. GIANVI [Suspect]
  2. YAZ [Suspect]
  3. MUPIROCIN [Concomitant]
     Dosage: 2 %, BID
  4. NIZORAL [Concomitant]
     Dosage: 2 %, EVERY DAY
     Route: 061
  5. ANUSOL HC [Concomitant]
     Dosage: 2.5 %, BI, EVERY DAY
     Route: 061
  6. SPECTAZOLE [Concomitant]
     Dosage: 1 %, BID, EVERY DAY
     Route: 061
  7. NYSTATIN [Concomitant]
     Dosage: 100,000 UNIT PER ML; TAKE 5 MILLILITER 4 TIMES EVERY DAY
     Route: 048
  8. PROCTOZONE-H [Concomitant]
     Dosage: 2.5 %, APPLY TO AFFECTED AREA TWICE A DAY
  9. BYSTOLIC [Concomitant]
     Dosage: 5 MG, EVERY DAY
     Route: 048
  10. TERBINAFINE [Concomitant]
     Dosage: 1 %, TO AFFECTED AREAS OF SKIN
     Route: 061
  11. DYAZIDE [Concomitant]
     Dosage: 37.5 MG-25 MG DAILY
     Route: 048
  12. CLOTRIMAZOLE [Concomitant]
     Dosage: 10 MG, 5 TIMES A DAY
     Route: 048
  13. SUBOXONE [Concomitant]
     Dosage: 8 MG, DAILY
     Route: 048
  14. INDERAL [Concomitant]
     Indication: BLOOD PRESSURE MANAGEMENT
     Dosage: 60 MG A DAY, 60 MG T.I..D
     Route: 048
  15. PROZAC [Concomitant]
     Dosage: 40 MG, DAILY
     Route: 048
  16. TRAZODONE [Concomitant]
     Dosage: 300 MG, EVERY BEDTIME
     Route: 048
  17. VICODIN [Concomitant]

REACTIONS (2)
  - Subarachnoid haemorrhage [Recovered/Resolved]
  - Cerebrovascular accident [None]
